FAERS Safety Report 5909607-3 (Version None)
Quarter: 2008Q4

REPORT INFORMATION
  Report Type: 
  Country: None (occurrence: None)
  Receive Date: 20081002
  Receipt Date: 20080923
  Transmission Date: 20090506
  Serious: Yes (Death, Hospitalization)
  Sender: FDA-Public Use
  Company Number: 2008-03384

PATIENT
  Age: 73 Year
  Sex: Male

DRUGS (2)
  1. VELCADE [Suspect]
     Indication: MULTIPLE MYELOMA
     Dosage: 1.3 MG/M2
     Dates: start: 20080415, end: 20080911
  2. RISPERDAL [Concomitant]

REACTIONS (2)
  - DISEASE PROGRESSION [None]
  - HICCUPS [None]
